FAERS Safety Report 4670265-X (Version None)
Quarter: 2005Q2

REPORT INFORMATION
  Report Type: 
  Country: None (occurrence: None)
  Receive Date: 20050519
  Receipt Date: 20050131
  Transmission Date: 20051028
  Serious: No
  Sender: FDA-Public Use
  Company Number: SUS1-2005-00063

PATIENT
  Sex: Male

DRUGS (1)
  1. FOSRENOL [Suspect]

REACTIONS (1)
  - MUSCLE SPASMS [None]
